FAERS Safety Report 10616683 (Version 1)
Quarter: 2014Q4

REPORT INFORMATION
  Report Type: Spontaneous
  Country: US (occurrence: US)
  Receive Date: 20141201
  Receipt Date: 20141201
  Transmission Date: 20150529
  Serious: Yes (Hospitalization, Other)
  Sender: FDA-Public Use
  Company Number: US-ACTAVIS-2014-25399

PATIENT
  Age: 33 Year
  Sex: Female

DRUGS (2)
  1. IBUPROFEN (AMALLC) [Suspect]
     Active Substance: IBUPROFEN
     Indication: ARTHRALGIA
     Dosage: 400 MG, SINGLE
     Route: 065
  2. IBUPROFEN (AMALLC) [Suspect]
     Active Substance: IBUPROFEN
     Indication: MYALGIA
     Dosage: 400 MG, Q6H
     Route: 065

REACTIONS (1)
  - Meningitis aseptic [Recovered/Resolved]
